FAERS Safety Report 23712000 (Version 1)
Quarter: 2024Q2

REPORT INFORMATION
  Report Type: Spontaneous
  Country: FR (occurrence: FR)
  Receive Date: 20240405
  Receipt Date: 20240405
  Transmission Date: 20240715
  Serious: Yes (Life-Threatening, Hospitalization)
  Sender: FDA-Public Use
  Company Number: None

PATIENT
  Age: 15 Year
  Sex: Male
  Weight: 52.5 kg

DRUGS (10)
  1. METHOTREXATE [Suspect]
     Active Substance: METHOTREXATE
     Indication: Acute lymphocytic leukaemia
     Dosage: TIME INTERVAL: TOTAL: 10 PERCENT (5 G/50 ML), METHOTREXATE TEVA
     Route: 042
     Dates: start: 20230825, end: 20230825
  2. METHOTREXATE [Suspect]
     Active Substance: METHOTREXATE
     Indication: Acute lymphocytic leukaemia
     Dosage: TIME INTERVAL: TOTAL: METHOTREXATE TEVA
     Route: 042
     Dates: start: 20230916, end: 20230916
  3. METHOTREXATE [Suspect]
     Active Substance: METHOTREXATE
     Indication: Acute lymphocytic leukaemia
     Dosage: TIME INTERVAL: TOTAL: METHOTREXATE TEVA
     Route: 042
     Dates: start: 20231121, end: 20231121
  4. METHOTREXATE [Suspect]
     Active Substance: METHOTREXATE
     Indication: Acute lymphocytic leukaemia
     Dosage: TIME INTERVAL: TOTAL: METHOTREXATE TEVA
     Route: 042
     Dates: start: 20231211, end: 20231211
  5. METHOTREXATE [Suspect]
     Active Substance: METHOTREXATE
     Indication: Acute lymphocytic leukaemia
     Dosage: TIME INTERVAL: TOTAL: METHOTREXATE TEVA
     Route: 042
     Dates: start: 20231009, end: 20231009
  6. ATARAX [Concomitant]
     Active Substance: HYDROXYZINE HYDROCHLORIDE
     Indication: Product used for unknown indication
     Dosage: IF NECESSARY, DIVISIBLE COATED TABLET
     Route: 048
  7. ACETAMINOPHEN [Concomitant]
     Active Substance: ACETAMINOPHEN
     Indication: Pain
     Dosage: IF PAIN
     Route: 048
  8. ERWINASE [Suspect]
     Active Substance: ASPARAGINASE ERWINIA CHRYSANTHEMI
     Indication: Acute lymphocytic leukaemia
     Dosage: TIME INTERVAL: TOTAL
     Route: 042
     Dates: start: 20231211, end: 20231211
  9. ERWINASE [Suspect]
     Active Substance: ASPARAGINASE ERWINIA CHRYSANTHEMI
     Indication: Acute lymphocytic leukaemia
     Dosage: TIME INTERVAL: TOTAL
     Route: 042
     Dates: start: 20231220, end: 20231220
  10. TRAMADOL [Concomitant]
     Active Substance: TRAMADOL\TRAMADOL HYDROCHLORIDE
     Indication: Pain
     Dosage: IF PAIN
     Route: 048

REACTIONS (3)
  - Overdose [Recovered/Resolved]
  - Acute kidney injury [Recovered/Resolved]
  - Neurological symptom [Recovered/Resolved]

NARRATIVE: CASE EVENT DATE: 20231212
